FAERS Safety Report 6223686-8 (Version None)
Quarter: 2009Q2

REPORT INFORMATION
  Report Type: 
  Country: None (occurrence: None)
  Receive Date: 20090611
  Receipt Date: 20090316
  Transmission Date: 20091009
  Serious: No
  Sender: FDA-Public Use
  Company Number: US-ABBOTT-08P-163-0487393-00

PATIENT
  Sex: Female
  Weight: 87.168 kg

DRUGS (9)
  1. HUMIRA [Suspect]
     Indication: PSORIASIS
     Route: 058
     Dates: start: 20080801
  2. NIFEDIPINE [Concomitant]
     Indication: HYPERTENSION
     Route: 048
  3. OXYCODONE [Concomitant]
     Indication: PAIN
     Dosage: 5/325
     Route: 048
  4. NAPROXEN [Concomitant]
     Indication: PAIN
     Route: 048
  5. METFORMIN HYDROCHLORIDE [Concomitant]
     Indication: DIABETES MELLITUS
  6. AMBIEN [Concomitant]
     Indication: INSOMNIA
     Route: 048
  7. OMEPRAZOLE [Concomitant]
     Indication: GASTRIC DISORDER
     Route: 048
  8. ACTOS [Concomitant]
     Indication: DIABETES MELLITUS
     Route: 048
  9. CLARITIN [Concomitant]
     Indication: PRURITUS
     Route: 048

REACTIONS (2)
  - INCORRECT DOSE ADMINISTERED [None]
  - WRONG TECHNIQUE IN DRUG USAGE PROCESS [None]
